FAERS Safety Report 12739661 (Version 2)
Quarter: 2016Q4

REPORT INFORMATION
  Report Type: Spontaneous
  Country: GB (occurrence: GB)
  Receive Date: 20160913
  Receipt Date: 20161125
  Transmission Date: 20170207
  Serious: Yes (Life-Threatening, Hospitalization, Other)
  Sender: FDA-Public Use
  Company Number: GB-009507513-1609GBR001196

PATIENT
  Age: 58 Year
  Sex: Male

DRUGS (1)
  1. SUGAMMADEX SODIUM [Suspect]
     Active Substance: SUGAMMADEX SODIUM
     Indication: NEUROMUSCULAR BLOCKADE REVERSAL
     Dosage: 200 MG, AS A SINGLE BOLUS DOSE
     Route: 042
     Dates: start: 201403, end: 201403

REACTIONS (2)
  - Laryngospasm [Recovered/Resolved]
  - Upper airway obstruction [Recovered/Resolved]

NARRATIVE: CASE EVENT DATE: 201403
